FAERS Safety Report 6290980-4 (Version None)
Quarter: 2009Q3

REPORT INFORMATION
  Report Type: 
  Country: None (occurrence: None)
  Receive Date: 20090730
  Receipt Date: 20090720
  Transmission Date: 20100115
  Serious: Yes (Other)
  Sender: FDA-Public Use
  Company Number: GR-PFIZER INC-2009242438

PATIENT

DRUGS (2)
  1. TOVIAZ [Suspect]
     Indication: HYPERTONIC BLADDER
     Dosage: 4 MG, 1X/DAY
     Route: 048
     Dates: start: 20090710
  2. REMERON [Concomitant]
     Indication: DEPRESSION
     Dosage: UNK

REACTIONS (2)
  - HYPERTENSION [None]
  - PULMONARY OEDEMA [None]
